FAERS Safety Report 10072790 (Version 1)
Quarter: 2014Q2

REPORT INFORMATION
  Report Type: Spontaneous
  Country: FR (occurrence: FR)
  Receive Date: 20140411
  Receipt Date: 20140411
  Transmission Date: 20141212
  Serious: Yes (Hospitalization, Other)
  Sender: FDA-Public Use
  Company Number: FR-ASTRAZENECA-2014SE24234

PATIENT
  Age: 25886 Day
  Sex: Female

DRUGS (17)
  1. BRILIQUE [Suspect]
     Route: 048
     Dates: start: 201311
  2. ASPEGIC CHILDREN [Interacting]
     Route: 048
     Dates: start: 201401
  3. IPERTEN [Concomitant]
     Route: 048
  4. HYPERIUM [Concomitant]
     Route: 048
  5. TAHOR [Concomitant]
     Route: 048
  6. ESIDREX [Concomitant]
     Route: 048
  7. TRIATEC [Concomitant]
     Route: 048
  8. LANTUS [Concomitant]
     Route: 058
  9. NOVORAPID [Concomitant]
     Route: 058
  10. EUPANTOL [Concomitant]
     Route: 048
     Dates: end: 20140313
  11. SMECTA [Concomitant]
     Route: 048
  12. ZOLPIDEM [Concomitant]
     Route: 048
  13. TRANSIPEG [Concomitant]
     Route: 048
     Dates: start: 201401
  14. SELOKEN [Concomitant]
     Route: 048
     Dates: start: 201312
  15. DEDROGYL [Concomitant]
     Dosage: 15 MG/100 ML, 5 DF QD
     Route: 048
  16. DOMPERIDONE [Concomitant]
     Route: 048
     Dates: start: 201401
  17. LYRICA [Concomitant]
     Route: 048

REACTIONS (5)
  - Drug interaction [Unknown]
  - Anaemia [Recovered/Resolved]
  - Pulmonary oedema [Unknown]
  - Melaena [Recovered/Resolved]
  - Chronic gastritis [Unknown]
